FAERS Safety Report 24367746 (Version 1)
Quarter: 2024Q3

REPORT INFORMATION
  Report Type: Report from Study
  Country: FR (occurrence: FR)
  Receive Date: 20240926
  Receipt Date: 20240926
  Transmission Date: 20241017
  Serious: Yes (Death, Life-Threatening, Hospitalization, Other)
  Sender: BRISTOL MYERS SQUIBB
  Company Number: None

PATIENT
  Age: 64 Year
  Sex: Male
  Weight: 95 kg

DRUGS (7)
  1. OPDIVO [Suspect]
     Active Substance: NIVOLUMAB
     Indication: Renal cell carcinoma
     Dosage: ONCE/EVERY 15 DAYS
     Route: 042
     Dates: start: 20240417, end: 20240515
  2. OPDIVO [Suspect]
     Active Substance: NIVOLUMAB
     Indication: Renal cancer metastatic
     Dosage: ONCE/EVERY 15 DAYS
     Route: 042
     Dates: start: 20240430
  3. OPDIVO [Suspect]
     Active Substance: NIVOLUMAB
     Dosage: ONCE/EVERY 15 DAYS
     Route: 042
     Dates: start: 20240515
  4. CABOMETYX [Suspect]
     Active Substance: CABOZANTINIB S-MALATE
     Indication: Renal cell carcinoma
     Route: 048
     Dates: start: 20240417, end: 20240529
  5. CABOMETYX [Suspect]
     Active Substance: CABOZANTINIB S-MALATE
     Indication: Renal cancer metastatic
  6. PERINDOPRIL [Concomitant]
     Active Substance: PERINDOPRIL
     Indication: Hypertension
     Dosage: 2 MG IN THE MORNING
     Route: 048
  7. IXPRIM [Concomitant]
     Active Substance: ACETAMINOPHEN\TRAMADOL HYDROCHLORIDE
     Indication: Back pain
     Route: 048

REACTIONS (8)
  - Asthenia [Not Recovered/Not Resolved]
  - Febrile neutropenia [Fatal]
  - Drug reaction with eosinophilia and systemic symptoms [Fatal]
  - Erythema [Not Recovered/Not Resolved]
  - Sinus tachycardia [Unknown]
  - Off label use [Unknown]
  - Agranulocytosis [Fatal]
  - Septic shock [Fatal]

NARRATIVE: CASE EVENT DATE: 20240501
